FAERS Safety Report 7926730-2 (Version None)
Quarter: 2011Q4

REPORT INFORMATION
  Report Type: 
  Country: None (occurrence: None)
  Receive Date: 20111118
  Receipt Date: 20111109
  Transmission Date: 20120403
  Serious: Yes (Other)
  Sender: FDA-Public Use
  Company Number: US-JNJFOC-20110808985

PATIENT
  Sex: Male
  Weight: 84.37 kg

DRUGS (4)
  1. REMICADE [Suspect]
     Indication: CROHN'S DISEASE
     Dosage: DOSE:100(UNITS UNSPECIFIED)
     Route: 042
     Dates: start: 20100729
  2. IRON [Concomitant]
     Route: 065
  3. VITAMIN TAB [Concomitant]
     Route: 065
  4. REMICADE [Suspect]
     Indication: COLITIS ULCERATIVE
     Dosage: DOSE:100(UNITS UNSPECIFIED)
     Route: 042
     Dates: start: 20100729

REACTIONS (1)
  - ACUTE FEBRILE NEUTROPHILIC DERMATOSIS [None]
